FAERS Safety Report 6219763-8 (Version None)
Quarter: 2009Q2

REPORT INFORMATION
  Report Type: 
  Country: None (occurrence: None)
  Receive Date: 20090609
  Receipt Date: 20090601
  Transmission Date: 20091009
  Serious: Yes (Hospitalization)
  Sender: FDA-Public Use
  Company Number: A0787708A

PATIENT
  Age: 8 Year
  Sex: Female

DRUGS (2)
  1. ACYCLOVIR [Suspect]
     Dosage: 800MG THREE TIMES PER DAY
     Route: 048
     Dates: start: 20090526, end: 20090528
  2. NO CONCURRENT MEDICATION [Concomitant]

REACTIONS (8)
  - ABASIA [None]
  - COORDINATION ABNORMAL [None]
  - DIZZINESS [None]
  - EYE ROLLING [None]
  - HYPERTONIA [None]
  - INCOHERENT [None]
  - OVERDOSE [None]
  - VOMITING [None]
